FAERS Safety Report 7869022-2 (Version None)
Quarter: 2011Q4

REPORT INFORMATION
  Report Type: 
  Country: None (occurrence: None)
  Receive Date: 20111024
  Receipt Date: 20111010
  Transmission Date: 20120403
  Serious: Yes (Other)
  Sender: FDA-Public Use
  Company Number: DSA_45187_2011

PATIENT
  Age: 61 Year
  Sex: Female

DRUGS (17)
  1. LOSARTAN POTASSIUM [Concomitant]
  2. SIMVASTATIN [Suspect]
     Indication: PRODUCT USED FOR UNKNOWN INDICATION
     Dosage: 40 MGQD, EVERY NIGHT, REDUCED TO HALF DOSE
     Dates: start: 20100913, end: 20100101
  3. SIMVASTATIN [Suspect]
     Indication: PRODUCT USED FOR UNKNOWN INDICATION
     Dosage: 40 MGQD, EVERY NIGHT, REDUCED TO HALF DOSE
     Dates: start: 20101101
  4. BENDROFLUMETHIAZIDE [Concomitant]
  5. BETA BLOCKING AGENTS [Concomitant]
  6. RAMIPRIL [Suspect]
     Indication: BLOOD PRESSURE
     Dosage: 0.75 MG DAILY (1/2 TABLET DAILY) (INCREASED TO 2.5 MG)
     Dates: start: 20101206, end: 20101216
  7. RAMIPRIL [Suspect]
     Indication: BLOOD PRESSURE
     Dosage: 0.75 MG DAILY (1/2 TABLET DAILY) (INCREASED TO 2.5 MG)
     Dates: start: 20101118, end: 20101101
  8. RAMIPRIL [Suspect]
     Indication: BLOOD PRESSURE
     Dosage: 0.75 MG DAILY (1/2 TABLET DAILY) (INCREASED TO 2.5 MG)
     Dates: start: 20101101, end: 20101205
  9. DILTIAZEM HYDROCHLORIDE [Suspect]
     Indication: PRODUCT USED FOR UNKNOWN INDICATION
     Dosage: 200MG QD
     Dates: start: 20101006
  10. INFDAPAMIDE [Concomitant]
  11. ASPIRIN [Concomitant]
  12. ALL OTHER THERAPEUTIC PRODUCTS [Concomitant]
  13. MEBEVERINE [Concomitant]
  14. BISOPROLOL FUMARATE [Suspect]
     Indication: PRODUCT USED FOR UNKNOWN INDICATION
     Dosage: DF
     Dates: start: 20101001, end: 20101006
  15. CHAPARRAL DANDELION BLEND [Concomitant]
  16. SOTALOL HCL [Concomitant]
  17. TONIC FROM A MEDICAL HERBALIST [Concomitant]

REACTIONS (15)
  - EAR DISORDER [None]
  - VISUAL FIELD DEFECT [None]
  - VERTIGO [None]
  - VISION BLURRED [None]
  - NAUSEA [None]
  - DIZZINESS [None]
  - RHINALGIA [None]
  - CONDITION AGGRAVATED [None]
  - OROPHARYNGEAL PAIN [None]
  - MIGRAINE [None]
  - VISUAL IMPAIRMENT [None]
  - FEELING ABNORMAL [None]
  - ANXIETY [None]
  - FACIAL PAIN [None]
  - EAR PAIN [None]
